FAERS Safety Report 8390514-4 (Version None)
Quarter: 2012Q2

REPORT INFORMATION
  Report Type: 
  Country: None (occurrence: None)
  Receive Date: 20120522
  Receipt Date: 20120510
  Transmission Date: 20120825
  Serious: Yes (Hospitalization, Other)
  Sender: FDA-Public Use
  Company Number: 2012SP025340

PATIENT
  Age: 71 Year
  Sex: Male
  Weight: 47 kg

DRUGS (10)
  1. ZANTAC [Concomitant]
  2. GLUFAST [Concomitant]
  3. TELAVIC (ANTIVIRALS NOS) [Suspect]
     Indication: HEPATITIS C
     Dosage: 2250 MG;QD;PO 1500 MG;QD;PO
     Route: 048
     Dates: start: 20120117, end: 20120229
  4. TELAVIC (ANTIVIRALS NOS) [Suspect]
     Indication: HEPATITIS C
     Dosage: 2250 MG;QD;PO 1500 MG;QD;PO
     Route: 048
     Dates: start: 20120301, end: 20120320
  5. REBETOL [Suspect]
     Indication: HEPATITIS C
     Dosage: 600 MG;QD;PO 200 MG;QD;PO
     Route: 048
     Dates: start: 20120117, end: 20120130
  6. REBETOL [Suspect]
     Indication: HEPATITIS C
     Dosage: 600 MG;QD;PO 200 MG;QD;PO
     Route: 048
     Dates: start: 20120131, end: 20120320
  7. PEGINTERFERON ALFA-2B [Suspect]
     Indication: HEPATITIS C
     Dosage: 1.5 MCG/KG;QW;SC
     Route: 058
     Dates: start: 20120117, end: 20120327
  8. ACETAMINOPHEN [Concomitant]
  9. TAMIFLU [Concomitant]
  10. PRIMPERAN TAB [Concomitant]

REACTIONS (3)
  - PANCREATITIS ACUTE [None]
  - PYREXIA [None]
  - ANAEMIA [None]
